FAERS Safety Report 11222412 (Version 1)
Quarter: 2015Q2

REPORT INFORMATION
  Report Type: Spontaneous
  Country: US (occurrence: US)
  Receive Date: 20150626
  Receipt Date: 20150626
  Transmission Date: 20150821
  Serious: No
  Sender: FDA-Public Use
  Company Number: US-009507513-1506USA007406

PATIENT
  Age: 75 Year
  Sex: Male

DRUGS (1)
  1. BELSOMRA [Suspect]
     Active Substance: SUVOREXANT
     Indication: POOR QUALITY SLEEP
     Dosage: HALF 10 MG TABLET, FREQUENCY UNSPECIFIED
     Route: 048
     Dates: start: 20150513, end: 20150515

REACTIONS (3)
  - Wrong technique in drug usage process [Unknown]
  - Drug prescribing error [Unknown]
  - Nightmare [Recovering/Resolving]

NARRATIVE: CASE EVENT DATE: 20150513
